FAERS Safety Report 9432591 (Version 1)
Quarter: 2013Q3

REPORT INFORMATION
  Report Type: Spontaneous
  Country: US (occurrence: US)
  Receive Date: 20130731
  Receipt Date: 20130731
  Transmission Date: 20140515
  Serious: No
  Sender: FDA-Public Use
  Company Number: US-BAYER-2013-092036

PATIENT
  Age: 64 Year
  Sex: Male

DRUGS (1)
  1. ALEVE GELCAPS [Suspect]
     Indication: BACK PAIN
     Dosage: 2 DF, BID
     Route: 048
     Dates: start: 20130723

REACTIONS (1)
  - Extra dose administered [None]
